FAERS Safety Report 22084456 (Version 1)
Quarter: 2023Q1

REPORT INFORMATION
  Report Type: Spontaneous
  Country: US (occurrence: None)
  Receive Date: 20230309
  Receipt Date: 20230309
  Transmission Date: 20230418
  Serious: Yes (Hospitalization)
  Sender: FDA-Public Use
  Company Number: None

PATIENT
  Age: 57 Year
  Sex: Male
  Weight: 65.77 kg

DRUGS (15)
  1. DEFERASIROX [Suspect]
     Active Substance: DEFERASIROX
     Indication: Product used for unknown indication
     Dosage: 360MG DAILY ORAL?
     Route: 048
     Dates: start: 20230201, end: 20230306
  2. HYDROXYUREA [Suspect]
     Active Substance: HYDROXYUREA
     Indication: Product used for unknown indication
     Dosage: 500MG DAILY ORAL
     Route: 048
     Dates: start: 20230201, end: 20230306
  3. ACETAMINOHEN [Concomitant]
  4. AMBIEN [Concomitant]
  5. CIPRO [Concomitant]
  6. FOLIC ACID [Concomitant]
  7. GLUTAMINE [Concomitant]
  8. JADENU [Concomitant]
  9. LIDOCAINE [Concomitant]
  10. MIRTAZAPINE [Concomitant]
  11. ONDANSETRON [Concomitant]
  12. OXBRYTA [Concomitant]
  13. OXYCODONE [Concomitant]
  14. XANAX [Concomitant]
  15. DEFERASIROX [Concomitant]

REACTIONS (1)
  - Therapy interrupted [None]

NARRATIVE: CASE EVENT DATE: 20230306
